FAERS Safety Report 4316271-6 (Version None)
Quarter: 2004Q1

REPORT INFORMATION
  Report Type: 
  Country: None (occurrence: None)
  Receive Date: 20040310
  Receipt Date: 20030818
  Transmission Date: 20041129
  Serious: Yes (Other)
  Sender: FDA-Public Use
  Company Number: HQWYE289722AUG03

PATIENT

DRUGS (2)
  1. PROTONIX [Suspect]
     Indication: ULCER
     Dosage: 40 MG 1X PER 1 DAY ORAL
     Dates: start: 20030728
  2. SYNTHROID (LEVOTHRYOXINE SODIUM) [Concomitant]

REACTIONS (2)
  - CONSTIPATION [None]
  - FAECALOMA [None]
